FAERS Safety Report 6273214-6 (Version None)
Quarter: 2009Q3

REPORT INFORMATION
  Report Type: 
  Country: None (occurrence: None)
  Receive Date: 20090720
  Receipt Date: 20090713
  Transmission Date: 20100115
  Serious: Yes (Other)
  Sender: FDA-Public Use
  Company Number: DE-AMGEN-STX348874

PATIENT
  Sex: Female
  Weight: 78.5 kg

DRUGS (7)
  1. MIMPARA [Suspect]
     Indication: HYPERPARATHYROIDISM SECONDARY
     Route: 048
     Dates: start: 20080213, end: 20081022
  2. VITARENAL [Concomitant]
     Route: 048
     Dates: start: 20011001
  3. ASPIRIN [Concomitant]
     Route: 048
     Dates: start: 20020419
  4. FUROSEMIDE [Concomitant]
     Route: 048
     Dates: start: 20031008
  5. LEVODOPA [Concomitant]
     Route: 048
     Dates: start: 20041004
  6. BISOPROLOL FUMARATE [Concomitant]
     Route: 048
     Dates: start: 20070131
  7. CALCIUM ACETATE [Concomitant]
     Route: 048
     Dates: start: 20050930

REACTIONS (2)
  - DIARRHOEA [None]
  - DIVERTICULUM [None]
